FAERS Safety Report 6295381-0 (Version None)
Quarter: 2009Q3

REPORT INFORMATION
  Report Type: 
  Country: None (occurrence: None)
  Receive Date: 20090803
  Receipt Date: 20090731
  Transmission Date: 20100115
  Serious: No
  Sender: FDA-Public Use
  Company Number: US-B.I. PHARMACEUTICALS,INC./RIDGEFIELD-2009-BP-08196BP

PATIENT
  Age: 80 Year
  Sex: Female
  Weight: 43.6 kg

DRUGS (2)
  1. SPIRIVA [Suspect]
     Dates: start: 20090101, end: 20090201
  2. ALBUTEROL [Concomitant]

REACTIONS (2)
  - PALPITATIONS [None]
  - TACHYCARDIA [None]
